FAERS Safety Report 8823731 (Version 2)
Quarter: 2014Q2

REPORT INFORMATION
  Report Type: Spontaneous
  Country: US (occurrence: US)
  Receive Date: 20121003
  Receipt Date: 20140423
  Transmission Date: 20141212
  Serious: Yes (Life-Threatening)
  Sender: FDA-Public Use
  Company Number: US-ROXANE LABORATORIES, INC.-2012-RO-01938RO

PATIENT
  Age: 86 Year
  Sex: Female

DRUGS (4)
  1. PREDNISONE [Suspect]
     Indication: POLYMYALGIA RHEUMATICA
     Dosage: 5 MG
     Route: 065
  2. TERIPARATIDE [Suspect]
     Indication: OSTEOPOROSIS
     Dosage: 20 MCG
     Route: 058
  3. WARFARIN [Suspect]
     Indication: DEEP VEIN THROMBOSIS
     Route: 065
  4. CALCITONIN [Suspect]
     Indication: OSTEOPOROSIS
     Route: 045

REACTIONS (1)
  - Calciphylaxis [Recovered/Resolved]
